FAERS Safety Report 23412627 (Version 4)
Quarter: 2024Q1

REPORT INFORMATION
  Report Type: Spontaneous
  Country: US (occurrence: US)
  Receive Date: 20240117
  Receipt Date: 20240123
  Transmission Date: 20240410
  Serious: No
  Sender: FDA-Public Use
  Company Number: US-NOVOPROD-1100473

PATIENT
  Sex: Male

DRUGS (4)
  1. WEGOVY [Suspect]
     Active Substance: SEMAGLUTIDE
     Indication: Weight decreased
     Dosage: UNK
     Route: 058
  2. WEGOVY [Suspect]
     Active Substance: SEMAGLUTIDE
     Indication: Weight control
     Dosage: UNK
     Route: 058
  3. WEGOVY [Suspect]
     Active Substance: SEMAGLUTIDE
     Indication: Weight control
     Dosage: UNK
     Route: 058
  4. OZEMPIC [Suspect]
     Active Substance: SEMAGLUTIDE
     Indication: Weight decreased
     Dosage: UNK
     Route: 058

REACTIONS (10)
  - Malaise [Unknown]
  - Body temperature fluctuation [Recovering/Resolving]
  - Musculoskeletal discomfort [Unknown]
  - Malaise [Unknown]
  - Feeling abnormal [Unknown]
  - Somnolence [Unknown]
  - Increased appetite [Unknown]
  - Headache [Unknown]
  - Fatigue [Recovering/Resolving]
  - Product prescribing error [Unknown]
